FAERS Safety Report 9589777 (Version 1)
Quarter: 2013Q4

REPORT INFORMATION
  Report Type: Spontaneous
  Country: US (occurrence: US)
  Receive Date: 20131003
  Receipt Date: 20131003
  Transmission Date: 20140711
  Serious: No
  Sender: FDA-Public Use
  Company Number: US-AMGEN-USASP2012072776

PATIENT
  Sex: Female

DRUGS (10)
  1. ENBREL [Suspect]
     Indication: PRODUCT USED FOR UNKNOWN INDICATION
     Dosage: 50 MG, QWK
     Route: 058
     Dates: start: 2010
  2. TRAMADOL HCL [Concomitant]
     Dosage: 50 MG, UNK
  3. GABAPENTIN [Concomitant]
     Dosage: 100 MG, UNK
  4. SERTRALINE [Concomitant]
     Dosage: 25 MG, UNK
  5. ZOLPIDEM [Concomitant]
     Dosage: 10 MG, UNK
  6. PREDNISONE [Concomitant]
     Dosage: 2.5 MG, UNK
  7. ALPRAZOLAM [Concomitant]
     Dosage: 2 MG, UNK
  8. PANTOPRAZOLE [Concomitant]
     Dosage: 20 MG, UNK
  9. ORENCIA [Concomitant]
     Dosage: 125 MG/ML
     Route: 058
  10. BACTRIM [Concomitant]
     Dosage: 400-80 MG

REACTIONS (1)
  - Condition aggravated [Unknown]
